FAERS Safety Report 6257522-0 (Version None)
Quarter: 2009Q3

REPORT INFORMATION
  Report Type: 
  Country: None (occurrence: None)
  Receive Date: 20090706
  Receipt Date: 20090624
  Transmission Date: 20100115
  Serious: Yes (Other)
  Sender: FDA-Public Use
  Company Number: AU-AVENTIS-200913852EU

PATIENT
  Age: 83 Year
  Sex: Female

DRUGS (11)
  1. FRUSEMIDE [Suspect]
  2. PARACETAMOL [Suspect]
     Dosage: DOSE: 1 G  4-HOURLY
  3. IRBESARTAN [Suspect]
  4. MELOXICAM [Suspect]
  5. PANTOPRAZOLE SODIUM [Suspect]
  6. SIGMACORT                          /00028601/ [Concomitant]
     Route: 061
  7. HYPROMELLOSE EYE DROPS [Concomitant]
     Dosage: DOSE: 2 DROPS
  8. SERETIDE                           /01420901/ [Concomitant]
     Dosage: DOSE: 2 PUFFS
  9. CARDIZEM [Concomitant]
  10. VALPROATE SODIUM [Concomitant]
  11. SERTRALINE [Concomitant]

REACTIONS (2)
  - DRUG INTERACTION [None]
  - RENAL FAILURE [None]
